FAERS Safety Report 15507037 (Version 1)
Quarter: 2018Q4

REPORT INFORMATION
  Report Type: Spontaneous
  Country: FR (occurrence: FR)
  Receive Date: 20181016
  Receipt Date: 20181016
  Transmission Date: 20190205
  Serious: Yes (Hospitalization)
  Sender: FDA-Public Use
  Company Number: PHHY2018FR122545

PATIENT
  Age: 62 Year
  Sex: Male
  Weight: 80.9 kg

DRUGS (4)
  1. VALACICLOVIR [Suspect]
     Active Substance: VALACYCLOVIR HYDROCHLORIDE
     Indication: HERPES ZOSTER
     Dosage: 0.5 G, UNK
     Route: 048
  2. FILGRASTIM [Concomitant]
     Active Substance: FILGRASTIM
     Indication: NEUTROPENIA
     Dosage: UNK
     Route: 042
     Dates: start: 20141128, end: 20141215
  3. TRAMADOL. [Suspect]
     Active Substance: TRAMADOL
     Indication: PAIN
     Dosage: UNK
     Route: 048
     Dates: start: 20141120, end: 20141124
  4. LENOGRASTIM [Concomitant]
     Active Substance: LENOGRASTIM
     Indication: ANAEMIA
     Dosage: UNK
     Route: 042
     Dates: start: 20141128, end: 20141215

REACTIONS (1)
  - Hallucination [Recovered/Resolved]

NARRATIVE: CASE EVENT DATE: 20141123
